FAERS Safety Report 9927723 (Version 2)
Quarter: 2014Q1

REPORT INFORMATION
  Report Type: Spontaneous
  Country: US (occurrence: US)
  Receive Date: 20140227
  Receipt Date: 20140303
  Transmission Date: 20141002
  Serious: Yes (Disabling, Other)
  Sender: FDA-Public Use
  Company Number: US-DRREDDYS-USA/USA/14/0038415

PATIENT
  Age: 59 Year
  Sex: Male

DRUGS (2)
  1. RISPERIDONE TABLETS [Suspect]
     Indication: MENTAL DISORDER
     Route: 048
  2. DEPAKOTE [Concomitant]
     Indication: PRODUCT USED FOR UNKNOWN INDICATION
     Route: 065

REACTIONS (2)
  - Hepatic cancer [Not Recovered/Not Resolved]
  - Breast cancer [Unknown]
